FAERS Safety Report 15551167 (Version 1)
Quarter: 2018Q4

REPORT INFORMATION
  Report Type: Other
  Country: ES (occurrence: ES)
  Receive Date: 20181025
  Receipt Date: 20181025
  Transmission Date: 20190205
  Serious: Yes (Hospitalization, Other)
  Sender: FDA-Public Use
  Company Number: ES-COVIS PHARMA B.V.-2018COV03811

PATIENT
  Age: 69 Year
  Sex: Male

DRUGS (5)
  1. POLARAMINE [Suspect]
     Active Substance: DEXCHLORPHENIRAMINE MALEATE
     Dosage: UNK
     Route: 030
     Dates: start: 201706
  2. ALLOPURINOL. [Suspect]
     Active Substance: ALLOPURINOL
     Indication: HYPERURICAEMIA
  3. SECALIP [Suspect]
     Active Substance: FENOFIBRATE
     Indication: HYPERCHOLESTEROLAEMIA
  4. ENALAPRIL MALEATE. [Suspect]
     Active Substance: ENALAPRIL MALEATE
     Indication: HYPERTENSION
     Route: 048
  5. OMEPRAZOLE MAGNESIUM. [Suspect]
     Active Substance: OMEPRAZOLE MAGNESIUM
     Indication: GASTROOESOPHAGEAL REFLUX DISEASE
     Route: 048

REACTIONS (14)
  - Hypersensitivity [Unknown]
  - Angina unstable [Unknown]
  - Pleurisy [Unknown]
  - Pleural effusion [Unknown]
  - Anaphylactic reaction [Unknown]
  - Pericardial effusion [Unknown]
  - Coronary artery disease [Unknown]
  - Cardiac failure [Unknown]
  - Systolic dysfunction [Unknown]
  - Atrial fibrillation [Unknown]
  - Surgery [Unknown]
  - Acute coronary syndrome [Unknown]
  - Pleuropericarditis [Unknown]
  - Pericarditis constrictive [Unknown]

NARRATIVE: CASE EVENT DATE: 201706
